FAERS Safety Report 19019411 (Version 1)
Quarter: 2021Q1

REPORT INFORMATION
  Report Type: Spontaneous
  Country: ID (occurrence: ID)
  Receive Date: 20210317
  Receipt Date: 20210317
  Transmission Date: 20210420
  Serious: Yes (Other)
  Sender: FDA-Public Use
  Company Number: ID-ASTRAZENECA-2021A131643

PATIENT
  Sex: Male

DRUGS (5)
  1. ASPIRIN. [Concomitant]
     Active Substance: ASPIRIN
  2. ATORVASTATIN [Concomitant]
     Active Substance: ATORVASTATIN
  3. BRILINTA [Suspect]
     Active Substance: TICAGRELOR
     Dosage: 90.0MG UNKNOWN
     Route: 048
  4. BRILINTA [Suspect]
     Active Substance: TICAGRELOR
     Dosage: EVERY 2 OR 3 DAYS (OFF?LABEL USE) WITH DOSE REMAIN 90 MG, TWICE DAILY UNKNOWN
     Route: 048
  5. BISOPROLOL [Concomitant]
     Active Substance: BISOPROLOL

REACTIONS (2)
  - Off label use [Not Recovered/Not Resolved]
  - Thrombocytopenia [Unknown]
